FAERS Safety Report 25858795 (Version 1)
Quarter: 2025Q3

REPORT INFORMATION
  Report Type: Spontaneous
  Country: US (occurrence: None)
  Receive Date: 20250927
  Receipt Date: 20250927
  Transmission Date: 20251020
  Serious: No
  Sender: FDA-CTU
  Company Number: None

PATIENT
  Age: 60 Year
  Sex: Female
  Weight: 84.4 kg

DRUGS (2)
  1. DEXAMETHASONE [Suspect]
     Active Substance: DEXAMETHASONE
     Dates: end: 20250828
  2. LENALIDOMIDE [Suspect]
     Active Substance: LENALIDOMIDE
     Dates: end: 20250828

REACTIONS (5)
  - Skin infection [None]
  - Hyperglycaemia [None]
  - Breast abscess [None]
  - Dermal cyst [None]
  - Cellulitis [None]

NARRATIVE: CASE EVENT DATE: 20250914
